FAERS Safety Report 19471953 (Version 1)
Quarter: 2021Q2

REPORT INFORMATION
  Report Type: Other
  Country: CA (occurrence: CA)
  Receive Date: 20210629
  Receipt Date: 20210629
  Transmission Date: 20210717
  Serious: Yes (Other)
  Sender: FDA-Public Use
  Company Number: CA-ROCHE-1192421

PATIENT
  Age: 46 Year
  Sex: Female
  Weight: 68 kg

DRUGS (29)
  1. PREDNISONE. [Concomitant]
     Active Substance: PREDNISONE
  2. ALENDRONATE [Concomitant]
     Active Substance: ALENDRONATE SODIUM
  3. CELEBREX [Concomitant]
     Active Substance: CELECOXIB
  4. FOLIC ACID. [Concomitant]
     Active Substance: FOLIC ACID
  5. STATEX (CANADA) [Concomitant]
     Active Substance: MORPHINE SULFATE
  6. MORPHINE [Concomitant]
     Active Substance: MORPHINE
  7. FLUCONAZOLE. [Concomitant]
     Active Substance: FLUCONAZOLE
  8. AZATHIOPRINE. [Concomitant]
     Active Substance: AZATHIOPRINE
  9. LORAZEPAM. [Concomitant]
     Active Substance: LORAZEPAM
  10. ALENDRONATE [Concomitant]
     Active Substance: ALENDRONATE SODIUM
  11. RAMIPRIL. [Concomitant]
     Active Substance: RAMIPRIL
  12. RITUXAN [Suspect]
     Active Substance: RITUXIMAB
     Dosage: 10MG/ML, REPEAT IN 2 WEEKS
     Route: 042
  13. CLINDAMYCIN. [Concomitant]
     Active Substance: CLINDAMYCIN
  14. NYSTATIN. [Concomitant]
     Active Substance: NYSTATIN
  15. DIPHENHYDRAMINE HCL [Concomitant]
     Active Substance: DIPHENHYDRAMINE HYDROCHLORIDE
     Indication: PREMEDICATION
     Route: 042
     Dates: start: 20130213
  16. METHYLPREDNISOLONE. [Concomitant]
     Active Substance: METHYLPREDNISOLONE
     Route: 042
     Dates: start: 20130213
  17. RITUXAN [Suspect]
     Active Substance: RITUXIMAB
     Indication: PEMPHIGOID
     Dosage: LAST DOSE OF RITUXIMAB: 23/NOV/2017
     Route: 042
     Dates: start: 20150302
  18. METHOTREXATE. [Suspect]
     Active Substance: METHOTREXATE
     Indication: PRODUCT USED FOR UNKNOWN INDICATION
     Route: 048
     Dates: start: 2019
  19. MYCOPHENOLATE MOFETIL. [Concomitant]
     Active Substance: MYCOPHENOLATE MOFETIL
  20. LIDOCAINE. [Concomitant]
     Active Substance: LIDOCAINE
  21. SPIRULINA [Concomitant]
     Active Substance: HERBALS\SPIRULINA
  22. HYDROMORPHONE [Concomitant]
     Active Substance: HYDROMORPHONE
     Indication: ARTHRALGIA
  23. RITUXAN [Suspect]
     Active Substance: RITUXIMAB
     Indication: PEMPHIGUS
     Dosage: STRENGTH: 10 MG/ML
     Route: 042
     Dates: start: 20130213
  24. DEMEROL [Concomitant]
     Active Substance: MEPERIDINE HYDROCHLORIDE
  25. ACYCLOVIR. [Concomitant]
     Active Substance: ACYCLOVIR
  26. GABAPENTIN. [Concomitant]
     Active Substance: GABAPENTIN
  27. VITAMIN C [Concomitant]
     Active Substance: ASCORBIC ACID
  28. MILK THISTLE [Concomitant]
     Active Substance: DIETARY SUPPLEMENT\HERBALS\MILK THISTLE
  29. ACETAMINOPHEN. [Concomitant]
     Active Substance: ACETAMINOPHEN
     Indication: PREMEDICATION
     Route: 048
     Dates: start: 20130213

REACTIONS (32)
  - Urticaria [Unknown]
  - Oral mucosal blistering [Unknown]
  - Infusion related reaction [Unknown]
  - Pruritus [Recovered/Resolved]
  - Pruritus [Recovered/Resolved]
  - Pain [Unknown]
  - Pemphigus [Unknown]
  - Tongue disorder [Unknown]
  - Anxiety [Unknown]
  - Aphthous ulcer [Not Recovered/Not Resolved]
  - Aphonia [Not Recovered/Not Resolved]
  - Infusion related reaction [Recovered/Resolved]
  - Arthritis [Not Recovered/Not Resolved]
  - Blood pressure increased [Unknown]
  - Off label use [Unknown]
  - White blood cell count decreased [Unknown]
  - Influenza [Unknown]
  - Ill-defined disorder [Not Recovered/Not Resolved]
  - Nausea [Not Recovered/Not Resolved]
  - Circumstance or information capable of leading to medication error [Unknown]
  - Infusion related reaction [Recovered/Resolved]
  - Fatigue [Not Recovered/Not Resolved]
  - Infection [Unknown]
  - Sepsis [Unknown]
  - Rash [Recovered/Resolved]
  - Product use in unapproved indication [Unknown]
  - Lung abscess [Recovered/Resolved]
  - Infusion related reaction [Unknown]
  - Blood pressure increased [Unknown]
  - Body temperature increased [Unknown]
  - Blood pressure fluctuation [Unknown]
  - Hot flush [Unknown]

NARRATIVE: CASE EVENT DATE: 20130213
